FAERS Safety Report 15884487 (Version 3)
Quarter: 2019Q3

REPORT INFORMATION
  Report Type: Report from Study
  Country: US (occurrence: US)
  Receive Date: 20190129
  Receipt Date: 20190920
  Transmission Date: 20191004
  Serious: Yes (Other)
  Sender: FDA-Public Use
  Company Number: PHHY2018US160257

PATIENT
  Age: 60 Year
  Sex: Male

DRUGS (1)
  1. GILENYA [Suspect]
     Active Substance: FINGOLIMOD HYDROCHLORIDE
     Indication: MULTIPLE SCLEROSIS
     Dosage: UNK, QD
     Route: 048

REACTIONS (9)
  - Lymphocyte count decreased [Unknown]
  - Muscular weakness [Unknown]
  - Temperature intolerance [Recovered/Resolved]
  - Fungal infection [Unknown]
  - Headache [Recovered/Resolved]
  - Uhthoff^s phenomenon [Recovered/Resolved]
  - Prostatic disorder [Unknown]
  - Nephrolithiasis [Unknown]
  - Gait disturbance [Recovered/Resolved]

NARRATIVE: CASE EVENT DATE: 20180509
